FAERS Safety Report 7050063-2 (Version None)
Quarter: 2010Q4

REPORT INFORMATION
  Report Type: 
  Country: None (occurrence: None)
  Receive Date: 20101018
  Receipt Date: 20101008
  Transmission Date: 20110411
  Serious: Yes (Hospitalization)
  Sender: FDA-Public Use
  Company Number: US-ASTRAZENECA-2010SE47780

PATIENT
  Sex: Female

DRUGS (4)
  1. CRESTOR [Suspect]
     Route: 048
     Dates: start: 20100701
  2. VIT D [Concomitant]
     Dosage: 5000 U WEEK
  3. M.V.I. [Concomitant]
  4. MOBIC [Concomitant]

REACTIONS (6)
  - ABDOMINAL DISCOMFORT [None]
  - ABDOMINAL PAIN UPPER [None]
  - DEHYDRATION [None]
  - FOOD POISONING [None]
  - NAUSEA [None]
  - VOMITING [None]
